FAERS Safety Report 11820180 (Version 3)
Quarter: 2016Q1

REPORT INFORMATION
  Report Type: Spontaneous
  Country: US (occurrence: US)
  Receive Date: 20151210
  Receipt Date: 20160204
  Transmission Date: 20160525
  Serious: Yes (Other)
  Sender: FDA-Public Use
  Company Number: US-ROCHE-1463520

PATIENT
  Age: 78 Year
  Sex: Male

DRUGS (5)
  1. LIPITOR [Concomitant]
     Active Substance: ATORVASTATIN CALCIUM
     Route: 048
  2. ERIVEDGE [Suspect]
     Active Substance: VISMODEGIB
     Indication: SKIN DISORDER
     Dosage: FOR 6 MONTHS; COMPLETED
     Route: 048
  3. ERIVEDGE [Suspect]
     Active Substance: VISMODEGIB
     Indication: BASAL CELL CARCINOMA
     Dosage: FOR 3 MONTHS
     Route: 048
     Dates: start: 2014
  4. ERIVEDGE [Suspect]
     Active Substance: VISMODEGIB
     Route: 048
     Dates: start: 20120205, end: 2015
  5. LUPRON [Concomitant]
     Active Substance: LEUPROLIDE ACETATE
     Route: 030

REACTIONS (14)
  - Alopecia [Unknown]
  - Urinary tract infection [Unknown]
  - Decreased appetite [Unknown]
  - Basal cell carcinoma [Not Recovered/Not Resolved]
  - Dysgeusia [Recovered/Resolved]
  - Appetite disorder [Unknown]
  - Neoplasm skin [Unknown]
  - Drug ineffective [Unknown]
  - Weight decreased [Recovered/Resolved]
  - Fatigue [Not Recovered/Not Resolved]
  - Skin disorder [Recovering/Resolving]
  - Glaucoma [Recovered/Resolved]
  - Blood cholesterol [Recovered/Resolved]
  - Muscle spasms [Recovered/Resolved]

NARRATIVE: CASE EVENT DATE: 20151020
